FAERS Safety Report 7325787-X (Version None)
Quarter: 2011Q1

REPORT INFORMATION
  Report Type: 
  Country: None (occurrence: None)
  Receive Date: 20110302
  Receipt Date: 20110216
  Transmission Date: 20110831
  Serious: Yes (Hospitalization)
  Sender: FDA-Public Use
  Company Number: US-BAYER-201031623NA

PATIENT
  Sex: Female
  Weight: 90.703 kg

DRUGS (3)
  1. IBUPROFEN [Concomitant]
     Dosage: UNK
     Dates: start: 20040101, end: 20080101
  2. YAZ [Suspect]
     Indication: ACNE
     Dosage: UNK
     Route: 048
     Dates: start: 20070520, end: 20070808
  3. YASMIN [Suspect]
     Indication: PRODUCT USED FOR UNKNOWN INDICATION
     Route: 048
     Dates: start: 20070520, end: 20070801

REACTIONS (2)
  - DEEP VEIN THROMBOSIS [None]
  - PAIN [None]
